FAERS Safety Report 4885236-8 (Version None)
Quarter: 2005Q4

REPORT INFORMATION
  Report Type: 
  Country: None (occurrence: None)
  Receive Date: 20051214
  Receipt Date: 20050503
  Transmission Date: 20060501
  Serious: Yes (Other)
  Sender: FDA-Public Use
  Company Number: 2005070724

PATIENT
  Sex: Female

DRUGS (2)
  1. NITROGLYCERIN [Suspect]
     Indication: CHEST PAIN
     Dosage: ORAL
     Route: 048
  2. SALBUTAMOL (SALBUTAMOL) [Concomitant]

REACTIONS (3)
  - FALL [None]
  - LOSS OF CONSCIOUSNESS [None]
  - SCRATCH [None]
